FAERS Safety Report 9263265 (Version 1)
Quarter: 2013Q2

REPORT INFORMATION
  Report Type: Spontaneous
  Country: US (occurrence: None)
  Receive Date: 20130429
  Receipt Date: 20130429
  Transmission Date: 20140414
  Serious: Yes (Hospitalization)
  Sender: FDA-Public Use
  Company Number: None

PATIENT
  Age: 42 Year
  Sex: Female
  Weight: 59 kg

DRUGS (4)
  1. GAMUNEX [Suspect]
     Indication: CHRONIC INFLAMMATORY DEMYELINATING POLYRADICULONEUROPATHY
     Dosage: 40GM DAILY X 3 DAYS IV
     Route: 042
     Dates: start: 20130409, end: 20130412
  2. SYNTHROID [Concomitant]
  3. ADVAIR [Concomitant]
  4. NEXIUM [Concomitant]

REACTIONS (3)
  - Pyrexia [None]
  - Influenza like illness [None]
  - Headache [None]
